FAERS Safety Report 5392441-3 (Version None)
Quarter: 2007Q3

REPORT INFORMATION
  Report Type: 
  Country: None (occurrence: None)
  Receive Date: 20070720
  Receipt Date: 20070712
  Transmission Date: 20080115
  Serious: Yes (Hospitalization, Other)
  Sender: FDA-Public Use
  Company Number: US-ROCHE-506912

PATIENT
  Age: 54 Year
  Sex: Female

DRUGS (8)
  1. BONIVA [Suspect]
     Indication: DRUG USE FOR UNKNOWN INDICATION
     Route: 048
     Dates: start: 20060901, end: 20070201
  2. KEFLEX [Suspect]
     Indication: DRUG USE FOR UNKNOWN INDICATION
     Route: 065
  3. RANITIDINE HCL [Concomitant]
  4. FLONASE [Concomitant]
  5. FLOVENT [Concomitant]
     Route: 055
  6. SPIRIVA [Concomitant]
     Dosage: REPORTED AS ^SPIRVA^
     Route: 055
  7. TYLENOL (CAPLET) [Concomitant]
  8. ASPIRIN [Concomitant]

REACTIONS (5)
  - BONE SCAN ABNORMAL [None]
  - CONSTIPATION [None]
  - DIARRHOEA [None]
  - ILEAL PERFORATION [None]
  - INFLUENZA [None]
